FAERS Safety Report 6111272-X (Version None)
Quarter: 2009Q1

REPORT INFORMATION
  Report Type: 
  Country: None (occurrence: None)
  Receive Date: 20090309
  Receipt Date: 20090309
  Transmission Date: 20090719
  Serious: Yes (Other)
  Sender: FDA-Public Use
  Company Number: None

PATIENT
  Sex: Female

DRUGS (3)
  1. XELODA [Suspect]
     Indication: COLON CANCER
     Dosage: 1500MG TWICE DAILY PO 01/2009 TO PRESENT
     Route: 048
  2. TYLENOL [Concomitant]
  3. 5-FLOROURACIL [Concomitant]

REACTIONS (5)
  - EAR PAIN [None]
  - MASTICATION DISORDER [None]
  - PAIN IN JAW [None]
  - TEMPERATURE INTOLERANCE [None]
  - TOOTHACHE [None]
